FAERS Safety Report 15028743 (Version 1)
Quarter: 2018Q2

REPORT INFORMATION
  Report Type: Spontaneous
  Country: US (occurrence: US)
  Receive Date: 20180528
  Receipt Date: 20180528
  Transmission Date: 20180711
  Serious: Yes (Other)
  Sender: FDA-Public Use
  Company Number: None

PATIENT
  Age: 25 Year
  Sex: Female
  Weight: 63.05 kg

DRUGS (1)
  1. NEXPLANON [Suspect]
     Active Substance: ETONOGESTREL
     Dates: start: 20150406, end: 20180502

REACTIONS (6)
  - Muscle spasms [None]
  - Mood swings [None]
  - Suicidal ideation [None]
  - Depression [None]
  - Headache [None]
  - Weight increased [None]

NARRATIVE: CASE EVENT DATE: 20150415
